FAERS Safety Report 23230929 (Version 1)
Quarter: 2023Q4

REPORT INFORMATION
  Report Type: Spontaneous
  Country: US (occurrence: None)
  Receive Date: 20231124
  Receipt Date: 20231124
  Transmission Date: 20240109
  Serious: No
  Sender: FDA-Public Use
  Company Number: None

PATIENT
  Age: 30 Month
  Sex: Female

DRUGS (6)
  1. VIGABATRIN [Suspect]
     Active Substance: VIGABATRIN
     Indication: Seizure
  2. KEPPRA [Concomitant]
     Active Substance: LEVETIRACETAM
  3. CLONAZEPAM [Concomitant]
     Active Substance: CLONAZEPAM
  4. VITAMIN B6 [Concomitant]
     Active Substance: PYRIDOXINE HYDROCHLORIDE
  5. VIGABATRIN [Concomitant]
     Active Substance: VIGABATRIN
  6. ONFI [Concomitant]
     Active Substance: CLOBAZAM

REACTIONS (5)
  - Therapy cessation [None]
  - Condition aggravated [None]
  - Small intestinal obstruction [None]
  - Pancreatitis [None]
  - Malabsorption [None]

NARRATIVE: CASE EVENT DATE: 20231122
